FAERS Safety Report 9452189 (Version 1)
Quarter: 2013Q3

REPORT INFORMATION
  Report Type: Spontaneous
  Country: US (occurrence: None)
  Receive Date: 20130808
  Receipt Date: 20130808
  Transmission Date: 20140515
  Serious: Yes (Death)
  Sender: FDA-Public Use
  Company Number: None

PATIENT
  Age: 37 Year
  Sex: Female
  Weight: 66.8 kg

DRUGS (3)
  1. PEGASYS [Suspect]
     Indication: HEPATITIS C
     Dosage: 180MCG  WEEK  SQ
     Route: 058
     Dates: start: 20130517
  2. RIBAVIRIN [Suspect]
     Dosage: 200 MG PO
     Route: 048
     Dates: start: 20130517
  3. INCIVEK [Suspect]
     Dosage: 325MG  TID  PO
     Route: 048
     Dates: start: 20130517

REACTIONS (1)
  - Overdose [None]
